FAERS Safety Report 16543951 (Version 1)
Quarter: 2019Q3

REPORT INFORMATION
  Report Type: Spontaneous
  Country: GB (occurrence: GB)
  Receive Date: 20190709
  Receipt Date: 20190709
  Transmission Date: 20191004
  Serious: Yes (Other)
  Sender: FDA-Public Use
  Company Number: GB-PFIZER INC-2019283981

PATIENT
  Age: 79 Year
  Sex: Female
  Weight: 39 kg

DRUGS (1)
  1. AMLODIPINE BESILATE [Suspect]
     Active Substance: AMLODIPINE BESYLATE
     Indication: HYPERTENSION
     Dosage: 15 MG, UNK
     Dates: start: 201904, end: 20190523

REACTIONS (7)
  - Food intolerance [Unknown]
  - Fatigue [Unknown]
  - Dry throat [Unknown]
  - Overdose [Unknown]
  - Abdominal discomfort [Unknown]
  - Dry mouth [Unknown]
  - Diarrhoea [Unknown]

NARRATIVE: CASE EVENT DATE: 201904
